FAERS Safety Report 11117567 (Version 1)
Quarter: 2015Q2

REPORT INFORMATION
  Report Type: Report from Study
  Country: NL (occurrence: NL)
  Receive Date: 20150517
  Receipt Date: 20150517
  Transmission Date: 20150821
  Serious: Yes (Hospitalization, Other)
  Sender: FDA-Public Use
  Company Number: PHHO2007NL01014

PATIENT
  Age: 22 Year
  Sex: Female

DRUGS (2)
  1. FTY [Suspect]
     Active Substance: FINGOLIMOD HYDROCHLORIDE
     Indication: MULTIPLE SCLEROSIS
     Dosage: 1.25 MG, QD
     Route: 048
     Dates: start: 20070110, end: 20070126
  2. ORAL CONTRACEPTIVE NOS [Concomitant]
     Active Substance: UNSPECIFIED INGREDIENT

REACTIONS (22)
  - Chest discomfort [Recovered/Resolved]
  - Nausea [Recovering/Resolving]
  - Influenza [Unknown]
  - Malaise [Recovering/Resolving]
  - Heart rate irregular [Recovered/Resolved]
  - Eye pain [Recovered/Resolved]
  - Dry mouth [Unknown]
  - Pyrexia [Unknown]
  - Conduction disorder [Recovering/Resolving]
  - Photopsia [Not Recovered/Not Resolved]
  - Nasopharyngitis [Unknown]
  - Anxiety [Unknown]
  - Dyspnoea [Recovered/Resolved]
  - Dizziness [Recovered/Resolved]
  - Pallor [Recovered/Resolved]
  - Sinus bradycardia [Recovered/Resolved]
  - Atrioventricular block second degree [Recovered/Resolved]
  - Myalgia [Unknown]
  - Chest pain [Recovered/Resolved]
  - Vomiting [Unknown]
  - Headache [Not Recovered/Not Resolved]
  - Palpitations [Recovered/Resolved]

NARRATIVE: CASE EVENT DATE: 20011019
